FAERS Safety Report 17331621 (Version 1)
Quarter: 2020Q1

REPORT INFORMATION
  Report Type: Report from Study
  Country: CA (occurrence: CA)
  Receive Date: 20200128
  Receipt Date: 20200128
  Transmission Date: 20200409
  Serious: Yes (Other)
  Sender: FDA-Public Use
  Company Number: CA-AMGEN-CANSL2020011517

PATIENT
  Age: 16 Year
  Sex: Female

DRUGS (1)
  1. ENBREL [Suspect]
     Active Substance: ETANERCEPT
     Indication: JUVENILE IDIOPATHIC ARTHRITIS
     Dosage: 44.8 MILLIGRAM, QWK
     Route: 065
     Dates: start: 20200119

REACTIONS (2)
  - Syncope [Unknown]
  - Product administration error [Unknown]

NARRATIVE: CASE EVENT DATE: 20200119
